FAERS Safety Report 6258373-3 (Version None)
Quarter: 2009Q3

REPORT INFORMATION
  Report Type: 
  Country: None (occurrence: None)
  Receive Date: 20090702
  Receipt Date: 20090702
  Transmission Date: 20100115
  Serious: Yes (Hospitalization)
  Sender: FDA-Public Use
  Company Number: None

PATIENT
  Age: 36 Year
  Sex: Female
  Weight: 61.2356 kg

DRUGS (1)
  1. LEVAQUIN [Suspect]
     Indication: POST PROCEDURAL INFECTION
     Dosage: 1 TABLET 1/DAY PO
     Route: 048
     Dates: start: 20090618, end: 20090622

REACTIONS (7)
  - ARTHRALGIA [None]
  - ARTHROPATHY [None]
  - CHEST PAIN [None]
  - DYSPNOEA [None]
  - GASTROOESOPHAGEAL REFLUX DISEASE [None]
  - JOINT RANGE OF MOTION DECREASED [None]
  - MIDDLE INSOMNIA [None]
